FAERS Safety Report 6403541-0 (Version None)
Quarter: 2009Q4

REPORT INFORMATION
  Report Type: 
  Country: None (occurrence: None)
  Receive Date: 20091015
  Receipt Date: 20091015
  Transmission Date: 20100525
  Serious: Yes (Other)
  Sender: FDA-Public Use
  Company Number: None

PATIENT
  Age: 15 Year
  Sex: Male
  Weight: 130 kg

DRUGS (2)
  1. THORAZINE [Suspect]
  2. BENADRYL [Concomitant]

REACTIONS (4)
  - ANHEDONIA [None]
  - CRYING [None]
  - DIARRHOEA [None]
  - FEELING ABNORMAL [None]
